FAERS Safety Report 22255774 (Version 2)
Quarter: 2023Q2

REPORT INFORMATION
  Report Type: Report from Study
  Country: US (occurrence: US)
  Receive Date: 20230426
  Receipt Date: 20230504
  Transmission Date: 20230721
  Serious: Yes (Hospitalization)
  Sender: FDA-Public Use
  Company Number: US-AMGEN-USACT2023042974

PATIENT
  Age: 72 Year
  Sex: Male
  Weight: 80.2 kg

DRUGS (1)
  1. TALIMOGENE LAHERPAREPVEC [Suspect]
     Active Substance: TALIMOGENE LAHERPAREPVEC
     Indication: Soft tissue sarcoma
     Dosage: 12 MILLILITER, (10E6 PFU/ML, 10E8 PFU/ML IN 4 ML)
     Route: 036
     Dates: start: 20221230

REACTIONS (3)
  - Radiation proctitis [Recovered/Resolved]
  - Diarrhoea [Not Recovered/Not Resolved]
  - Diarrhoea [Not Recovered/Not Resolved]

NARRATIVE: CASE EVENT DATE: 20230208
